FAERS Safety Report 8428702-0 (Version None)
Quarter: 2012Q2

REPORT INFORMATION
  Report Type: 
  Country: None (occurrence: None)
  Receive Date: 20120606
  Receipt Date: 20120523
  Transmission Date: 20120825
  Serious: Yes (Hospitalization)
  Sender: FDA-Public Use
  Company Number: TCI2011A05551

PATIENT
  Age: 67 Year
  Sex: Male

DRUGS (6)
  1. BASEN (VOGLIBOSE) [Concomitant]
  2. CHLORMADINONE ACETATE TAB [Concomitant]
  3. ENALAPRIL MALEATE [Concomitant]
  4. NORVASC [Concomitant]
  5. ACTOS [Suspect]
     Indication: DIABETES MELLITUS
     Dosage: 15 MG, PER ORAL
     Route: 048
  6. CRESTOR [Concomitant]

REACTIONS (2)
  - PROSTATE CANCER [None]
  - BLADDER CANCER [None]
